FAERS Safety Report 24706265 (Version 6)
Quarter: 2025Q2

REPORT INFORMATION
  Report Type: Spontaneous
  Country: CA (occurrence: CA)
  Receive Date: 20241206
  Receipt Date: 20250417
  Transmission Date: 20250716
  Serious: Yes (Hospitalization)
  Sender: CELLTRION
  Company Number: CA-PFIZER INC-202400307465

PATIENT

DRUGS (5)
  1. INFLECTRA [Suspect]
     Active Substance: INFLIXIMAB-DYYB
     Indication: Crohn^s disease
     Route: 042
     Dates: start: 20241113
  2. INFLECTRA [Suspect]
     Active Substance: INFLIXIMAB-DYYB
     Route: 042
     Dates: start: 20241128
  3. INFLECTRA [Suspect]
     Active Substance: INFLIXIMAB-DYYB
     Route: 042
     Dates: start: 20241213
  4. INFLECTRA [Suspect]
     Active Substance: INFLIXIMAB-DYYB
     Route: 042
     Dates: start: 20250317
  5. PREDNISONE [Concomitant]
     Active Substance: PREDNISONE
     Dates: start: 2024

REACTIONS (17)
  - Condition aggravated [Unknown]
  - Therapeutic response shortened [Unknown]
  - Haemoglobin decreased [Not Recovered/Not Resolved]
  - Haematocrit decreased [Not Recovered/Not Resolved]
  - Mean cell volume decreased [Not Recovered/Not Resolved]
  - Mean cell haemoglobin concentration decreased [Recovering/Resolving]
  - Red cell distribution width increased [Recovering/Resolving]
  - Lymphocyte count increased [Recovering/Resolving]
  - C-reactive protein increased [Recovering/Resolving]
  - Anion gap decreased [Unknown]
  - Blood albumin decreased [Unknown]
  - Blood iron decreased [Unknown]
  - Iron binding capacity total decreased [Unknown]
  - Serum ferritin increased [Unknown]
  - Mean cell haemoglobin decreased [Recovering/Resolving]
  - Off label use [Unknown]
  - Inappropriate schedule of product administration [Unknown]

NARRATIVE: CASE EVENT DATE: 20241201
